FAERS Safety Report 20757018 (Version 1)
Quarter: 2022Q2

REPORT INFORMATION
  Report Type: Spontaneous
  Country: GR (occurrence: None)
  Receive Date: 20220427
  Receipt Date: 20220427
  Transmission Date: 20220721
  Serious: Yes (Other)
  Sender: FDA-Public Use
  Company Number: GR-ROCHE-3080014

PATIENT
  Age: 73 Year
  Sex: Female

DRUGS (1)
  1. CELLCEPT [Suspect]
     Active Substance: MYCOPHENOLATE MOFETIL
     Indication: Organising pneumonia
     Route: 065
     Dates: start: 2018

REACTIONS (4)
  - Type 1 diabetes mellitus [Unknown]
  - Psoriatic arthropathy [Unknown]
  - Aortic valve stenosis [Unknown]
  - Off label use [Unknown]
